FAERS Safety Report 8806869 (Version 2)
Quarter: 2012Q4

REPORT INFORMATION
  Report Type: 
  Country: US (occurrence: US)
  Receive Date: 20120925
  Receipt Date: 20121011
  Transmission Date: 20130627
  Serious: Yes (Other)
  Sender: FDA-Public Use
  Company Number: US-ROCHE-1123119

PATIENT
  Sex: Female

DRUGS (6)
  1. AVASTIN [Suspect]
     Indication: BREAST CANCER FEMALE
     Route: 065
     Dates: start: 20051101
  2. AVASTIN [Suspect]
     Indication: HAEMATOLOGICAL MALIGNANCY
  3. AVASTIN [Suspect]
     Indication: BREAST CANCER METASTATIC
  4. GEMZAR [Concomitant]
  5. TAXOL [Concomitant]
     Route: 065
     Dates: start: 20051101
  6. ZOMETA [Concomitant]
     Route: 065
     Dates: start: 20051101

REACTIONS (1)
  - Pneumothorax [Unknown]
